FAERS Safety Report 15291912 (Version 2)
Quarter: 2018Q3

REPORT INFORMATION
  Report Type: Report from Study
  Country: US (occurrence: US)
  Receive Date: 20180817
  Receipt Date: 20180916
  Transmission Date: 20181010
  Serious: No
  Sender: FDA-Public Use
  Company Number: PHEH2018US034018

PATIENT
  Sex: Male
  Weight: 96.9 kg

DRUGS (1)
  1. ENTRESTO [Suspect]
     Active Substance: SACUBITRIL\VALSARTAN
     Indication: PRODUCT USED FOR UNKNOWN INDICATION
     Dosage: 0.5 DF, UNK
     Route: 048

REACTIONS (2)
  - Hypotension [Unknown]
  - Wrong technique in product usage process [Unknown]
